FAERS Safety Report 9297980 (Version 1)
Quarter: 2013Q2

REPORT INFORMATION
  Report Type: Spontaneous
  Country: FR (occurrence: FR)
  Receive Date: 20130520
  Receipt Date: 20130520
  Transmission Date: 20140414
  Serious: Yes (Death)
  Sender: FDA-Public Use
  Company Number: FR-PFIZER INC-2013148791

PATIENT
  Age: 62 Year
  Sex: Male

DRUGS (8)
  1. MEDROL [Suspect]
     Dosage: VARIABLE
     Route: 048
     Dates: end: 201304
  2. AVASTIN [Suspect]
     Indication: GLIOBLASTOMA
     Dosage: 10 MG/KG, EVERY 15 DAYS
     Route: 042
     Dates: start: 201211, end: 20130402
  3. IKOREL [Suspect]
     Dosage: 10 MG, 2X/DAY
     Route: 048
     Dates: end: 201304
  4. KEPPRA [Concomitant]
     Dosage: 500 MG, 2X/DAY
     Route: 048
     Dates: end: 201304
  5. INEXIUM [Concomitant]
     Dosage: 20 MG, 1X/DAY
     Route: 048
     Dates: end: 201304
  6. SECTRAL [Concomitant]
     Dosage: 100 MG, 2X/DAY
     Route: 048
     Dates: end: 201304
  7. PERINDOPRIL [Concomitant]
     Dosage: UNK
     Route: 048
     Dates: end: 201304
  8. INEGY [Concomitant]
     Dosage: 1 DF, 1X/DAY
     Route: 048
     Dates: end: 201304

REACTIONS (2)
  - Large intestine perforation [Fatal]
  - Pneumoperitoneum [Fatal]
